FAERS Safety Report 21603473 (Version 1)
Quarter: 2022Q4

REPORT INFORMATION
  Report Type: Spontaneous
  Country: GB (occurrence: GB)
  Receive Date: 20221116
  Receipt Date: 20221116
  Transmission Date: 20230113
  Serious: Yes (Hospitalization, Other)
  Sender: FDA-Public Use
  Company Number: GB-002147023-NVSC2022GB253562

PATIENT
  Age: 68 Year
  Sex: Female

DRUGS (1)
  1. PIQRAY [Suspect]
     Active Substance: ALPELISIB
     Indication: Breast cancer stage IV
     Dosage: 300 MG, QD, PIQRAY
     Route: 065

REACTIONS (2)
  - Uveitis [Recovered/Resolved]
  - Retinal detachment [Recovered/Resolved]
